FAERS Safety Report 22724734 (Version 2)
Quarter: 2025Q3

REPORT INFORMATION
  Report Type: Spontaneous
  Country: US (occurrence: US)
  Receive Date: 20230719
  Receipt Date: 20250722
  Transmission Date: 20251020
  Serious: No
  Sender: ENDO
  Company Number: US-ENDO PHARMACEUTICALS INC-2022-006492

PATIENT
  Sex: Male
  Weight: 81.633 kg

DRUGS (11)
  1. EDEX [Suspect]
     Active Substance: ALPROSTADIL
     Indication: Erectile dysfunction
     Route: 051
     Dates: start: 2020
  2. EDEX [Suspect]
     Active Substance: ALPROSTADIL
     Indication: Erectile dysfunction
     Route: 051
     Dates: start: 2020
  3. EDEX [Suspect]
     Active Substance: ALPROSTADIL
     Indication: Erectile dysfunction
     Route: 051
     Dates: start: 2020
  4. EDEX [Suspect]
     Active Substance: ALPROSTADIL
     Indication: Erectile dysfunction
     Route: 051
     Dates: start: 2020
  5. EDEX [Suspect]
     Active Substance: ALPROSTADIL
     Indication: Erectile dysfunction
     Route: 051
     Dates: start: 2020
  6. EDEX [Suspect]
     Active Substance: ALPROSTADIL
     Route: 051
     Dates: start: 2020
  7. EDEX [Suspect]
     Active Substance: ALPROSTADIL
     Route: 051
     Dates: start: 2020
  8. EDEX [Suspect]
     Active Substance: ALPROSTADIL
     Route: 051
     Dates: start: 2020
  9. EDEX [Suspect]
     Active Substance: ALPROSTADIL
     Route: 051
     Dates: start: 2020
  10. EDEX [Suspect]
     Active Substance: ALPROSTADIL
     Route: 051
     Dates: start: 2020
  11. TAMSULOSIN [Concomitant]
     Active Substance: TAMSULOSIN
     Indication: Prostatomegaly
     Route: 065

REACTIONS (2)
  - Fatigue [Not Recovered/Not Resolved]
  - Drug ineffective [Not Recovered/Not Resolved]
